FAERS Safety Report 7544082-7 (Version None)
Quarter: 2011Q2

REPORT INFORMATION
  Report Type: 
  Country: None (occurrence: None)
  Receive Date: 20110613
  Receipt Date: 20060220
  Transmission Date: 20111010
  Serious: Yes (Hospitalization, Other)
  Sender: FDA-Public Use
  Company Number: PHFR2005GB01867

PATIENT
  Sex: Female

DRUGS (1)
  1. CLOZAPINE [Suspect]
     Indication: SCHIZOPHRENIA
     Dosage: 150 MG, UNK
     Route: 048
     Dates: start: 19990513

REACTIONS (5)
  - HAEMOGLOBIN DECREASED [None]
  - DRUG EXPOSURE DURING PREGNANCY [None]
  - ABORTION SPONTANEOUS [None]
  - PELVIC INFECTION [None]
  - CERVICAL DYSPLASIA [None]
